FAERS Safety Report 6039340-1 (Version None)
Quarter: 2009Q1

REPORT INFORMATION
  Report Type: 
  Country: None (occurrence: None)
  Receive Date: 20090115
  Receipt Date: 20090108
  Transmission Date: 20090719
  Serious: Yes (Hospitalization)
  Sender: FDA-Public Use
  Company Number: JP-WYE-H07435008

PATIENT
  Sex: Male

DRUGS (12)
  1. ANCARON [Suspect]
     Indication: VENTRICULAR ARRHYTHMIA
     Dosage: NOT PROVIDED
     Route: 048
     Dates: start: 20080601, end: 20080901
  2. ANCARON [Suspect]
     Route: 048
     Dates: start: 20081212, end: 20081218
  3. ANCARON [Suspect]
     Route: 048
     Dates: start: 20081218, end: 20081221
  4. LIPITOR [Suspect]
     Indication: ISCHAEMIC HEART DISEASE PROPHYLAXIS
     Route: 048
     Dates: start: 20080617, end: 20081221
  5. ASPIRIN [Concomitant]
     Route: 048
     Dates: start: 20080617
  6. ALDACTONE [Concomitant]
     Indication: CARDIAC FAILURE
     Route: 048
     Dates: start: 20080601
  7. WARFARIN POTASSIUM [Concomitant]
     Indication: THROMBOSIS PROPHYLAXIS
     Route: 048
     Dates: start: 20080601, end: 20081222
  8. RABEPRAZOLE SODIUM [Concomitant]
     Indication: GASTROINTESTINAL ULCER
     Route: 048
     Dates: start: 20080617
  9. ARTIST [Concomitant]
     Indication: ISCHAEMIC HEART DISEASE PROPHYLAXIS
     Route: 048
     Dates: start: 20080601
  10. LASIX [Concomitant]
     Indication: CARDIAC FAILURE
     Route: 048
     Dates: start: 20080601
  11. PLAVIX [Concomitant]
     Indication: THROMBOSIS PROPHYLAXIS
     Route: 048
     Dates: start: 20080617
  12. NICORANDIL [Concomitant]
     Indication: ISCHAEMIC HEART DISEASE PROPHYLAXIS
     Dates: start: 20080601

REACTIONS (2)
  - LIVER DISORDER [None]
  - PNEUMONIA [None]
